FAERS Safety Report 12779514 (Version 1)
Quarter: 2016Q3

REPORT INFORMATION
  Report Type: Spontaneous
  Country: US (occurrence: US)
  Receive Date: 20160922
  Receipt Date: 20160922
  Transmission Date: 20161109
  Serious: No
  Sender: FDA-Public Use
  Company Number: None

PATIENT
  Age: 63 Year
  Sex: Male
  Weight: 87.6 kg

DRUGS (1)
  1. CERTOLIZUMAB [Suspect]
     Active Substance: CERTOLIZUMAB
     Indication: PAIN
     Route: 058
     Dates: start: 20100506, end: 20100816

REACTIONS (1)
  - Leukopenia [None]

NARRATIVE: CASE EVENT DATE: 20100816
